FAERS Safety Report 4308191-8 (Version None)
Quarter: 2004Q1

REPORT INFORMATION
  Report Type: 
  Country: None (occurrence: None)
  Receive Date: 20040301
  Receipt Date: 20030807
  Transmission Date: 20041129
  Serious: No
  Sender: FDA-Public Use
  Company Number: US-BRISTOL-MYERS SQUIBB COMPANY-12350351

PATIENT
  Age: 80 Year
  Sex: Female

DRUGS (8)
  1. GLUCOPHAGE [Suspect]
     Indication: DIABETES MELLITUS
     Route: 048
     Dates: start: 20030728
  2. ALTACE [Concomitant]
  3. AMIODARONE HCL [Concomitant]
  4. LIPITOR [Concomitant]
  5. NORVASC [Concomitant]
  6. SPIRONOLACTONE [Concomitant]
  7. DUONEB [Concomitant]
  8. OXYGEN [Concomitant]

REACTIONS (1)
  - BLOOD GLUCOSE INCREASED [None]
